FAERS Safety Report 9270620 (Version 2)
Quarter: 2013Q2

REPORT INFORMATION
  Report Type: Spontaneous
  Country: AU (occurrence: AU)
  Receive Date: 20130505
  Receipt Date: 20130625
  Transmission Date: 20140414
  Serious: Yes (Hospitalization)
  Sender: FDA-Public Use
  Company Number: AU-009507513-1208AUS008253

PATIENT
  Age: 53 Year
  Sex: Female
  Weight: 73.9 kg

DRUGS (7)
  1. VICTRELIS 200 MG [Suspect]
     Indication: HEPATITIS C
     Dosage: 800 MG, QD
     Route: 048
     Dates: start: 20120405, end: 20120817
  2. VICTRELIS 200 MG [Suspect]
     Indication: LIVER DISORDER
  3. RIBAVIRIN [Suspect]
     Indication: HEPATITIS C
     Dosage: 1000 MG DAILY
     Route: 048
     Dates: start: 20120405, end: 20120827
  4. RIBAVIRIN [Suspect]
     Indication: LIVER DISORDER
  5. INTERFERON (UNSPECIFIED) [Suspect]
     Indication: HEPATITIS C
     Dosage: 120 MG, QW
     Route: 058
     Dates: start: 20120405, end: 20120817
  6. INTERFERON (UNSPECIFIED) [Suspect]
     Indication: LIVER DISORDER
  7. MAXOLON [Concomitant]
     Indication: NAUSEA
     Dosage: 10 MG DAILY
     Dates: start: 20120608, end: 20120817

REACTIONS (3)
  - Vasculitis [Recovered/Resolved]
  - Neutropenia [Recovered/Resolved]
  - Anaemia [Recovered/Resolved]
